FAERS Safety Report 17336943 (Version 3)
Quarter: 2020Q1

REPORT INFORMATION
  Report Type: Spontaneous
  Country: JP (occurrence: JP)
  Receive Date: 20200128
  Receipt Date: 20200207
  Transmission Date: 20200409
  Serious: Yes (Life-Threatening, Hospitalization, Other)
  Sender: FDA-Public Use
  Company Number: JP-PFIZER INC-2020035659

PATIENT
  Age: 12 Year
  Sex: Female
  Weight: 31 kg

DRUGS (4)
  1. METHOTREXATE. [Interacting]
     Active Substance: METHOTREXATE
     Indication: ACUTE LYMPHOCYTIC LEUKAEMIA
  2. DASATINIB. [Interacting]
     Active Substance: DASATINIB
     Indication: CHEMOTHERAPY
     Dosage: 70 MG, CYCLIC
  3. DASATINIB. [Interacting]
     Active Substance: DASATINIB
     Indication: ACUTE LYMPHOCYTIC LEUKAEMIA
  4. METHOTREXATE. [Suspect]
     Active Substance: METHOTREXATE
     Indication: CHEMOTHERAPY
     Dosage: UNK, CYCLIC (5 G/M^2) (HIGH DOSE)

REACTIONS (4)
  - Drug interaction [Unknown]
  - Drug clearance decreased [Recovered/Resolved]
  - Drug level increased [Recovered/Resolved]
  - Acute kidney injury [Unknown]
